FAERS Safety Report 13310150 (Version 1)
Quarter: 2017Q1

REPORT INFORMATION
  Report Type: Spontaneous
  Country: US (occurrence: US)
  Receive Date: 20170308
  Receipt Date: 20170308
  Transmission Date: 20170428
  Serious: No
  Sender: FDA-Public Use
  Company Number: None

PATIENT
  Age: 49 Year
  Sex: Female

DRUGS (1)
  1. NAVELBINE [Suspect]
     Active Substance: VINORELBINE TARTRATE
     Indication: BREAST CANCER
     Dosage: 54MG DAYS 1 AND 8 EVERY 21 DAYS IV
     Route: 042
     Dates: start: 20170125, end: 20170125

REACTIONS (2)
  - Blister [None]
  - Mouth ulceration [None]

NARRATIVE: CASE EVENT DATE: 20170223
